FAERS Safety Report 24293459 (Version 1)
Quarter: 2024Q3

REPORT INFORMATION
  Report Type: Spontaneous
  Country: US (occurrence: None)
  Receive Date: 20240906
  Receipt Date: 20240906
  Transmission Date: 20241017
  Serious: No
  Sender: DOMPE FARMACEUTICI
  Company Number: US-FARMAPROD-202308-202401-0204

PATIENT
  Sex: Female

DRUGS (9)
  1. OXERVATE [Suspect]
     Active Substance: CENEGERMIN-BKBJ
     Indication: Dry eye
     Route: 047
     Dates: start: 20231228
  2. OXERVATE [Suspect]
     Active Substance: CENEGERMIN-BKBJ
     Indication: Punctate keratitis
  3. TRULICITY [Concomitant]
     Active Substance: DULAGLUTIDE
     Dosage: 3 MG/0.5ML PEN INJECTOR
  4. PROTONIX [Concomitant]
     Active Substance: PANTOPRAZOLE SODIUM
  5. ASPIRIN [Concomitant]
     Active Substance: ASPIRIN
  6. FERROUS SULFATE [Concomitant]
     Active Substance: FERROUS SULFATE
     Dosage: 325(65) MG
  7. GLIMEPIRIDE [Concomitant]
     Active Substance: GLIMEPIRIDE
  8. ARIMIDEX [Concomitant]
     Active Substance: ANASTROZOLE
  9. COREG [Concomitant]
     Active Substance: CARVEDILOL

REACTIONS (4)
  - Eye pain [Unknown]
  - Periorbital pain [Unknown]
  - Product dose omission issue [Unknown]
  - Device use issue [Unknown]
